FAERS Safety Report 8197444-1 (Version None)
Quarter: 2012Q1

REPORT INFORMATION
  Report Type: 
  Country: None (occurrence: None)
  Receive Date: 20120309
  Receipt Date: 20120301
  Transmission Date: 20120608
  Serious: Yes (Death, Hospitalization, Other)
  Sender: FDA-Public Use
  Company Number: JP-NAPPMUNDI-MAG-2011-0001784

PATIENT
  Sex: Male

DRUGS (1)
  1. BUPRENORPHINE [Suspect]
     Indication: PAIN
     Dosage: 5 MCG, Q1H
     Route: 062
     Dates: start: 20111021, end: 20111023

REACTIONS (9)
  - VOMITING [None]
  - CELLULITIS [None]
  - NAUSEA [None]
  - DYSLALIA [None]
  - DECREASED APPETITE [None]
  - SEPTIC SHOCK [None]
  - GAIT DISTURBANCE [None]
  - ASTHENIA [None]
  - URINARY INCONTINENCE [None]
